FAERS Safety Report 21134487 (Version 1)
Quarter: 2022Q3

REPORT INFORMATION
  Report Type: Spontaneous
  Country: MX (occurrence: MX)
  Receive Date: 20220726
  Receipt Date: 20220726
  Transmission Date: 20221027
  Serious: Yes (Other)
  Sender: FDA-Public Use
  Company Number: MX-BAYER-2022P008387

PATIENT
  Age: 74 Year
  Sex: Female

DRUGS (1)
  1. RIVAROXABAN [Suspect]
     Active Substance: RIVAROXABAN
     Indication: Product used for unknown indication
     Dosage: HALF TABLET 10 MG EVERY 24 HOURS
     Route: 048
     Dates: start: 20220719

REACTIONS (2)
  - Myocardial infarction [Unknown]
  - Product prescribing issue [Unknown]
